FAERS Safety Report 8617705-9 (Version None)
Quarter: 2012Q3

REPORT INFORMATION
  Report Type: 
  Country: None (occurrence: None)
  Receive Date: 20120824
  Receipt Date: 20120118
  Transmission Date: 20120928
  Serious: No
  Sender: FDA-Public Use
  Company Number: US-ASTRAZENECA-2012SE03644

PATIENT
  Age: 66 Year
  Sex: Male
  Weight: 111.1 kg

DRUGS (2)
  1. SYMBICORT [Suspect]
     Indication: CHRONIC OBSTRUCTIVE PULMONARY DISEASE
     Dosage: 160/4.5 MCG 2 PUFFS TWICE DAILY
     Route: 055
     Dates: start: 20090101
  2. SPIRIVA [Concomitant]

REACTIONS (2)
  - BLOOD IMMUNOGLOBULIN E INCREASED [None]
  - EOSINOPHIL COUNT INCREASED [None]
